FAERS Safety Report 7919111 (Version 4)
Quarter: 2017Q1

REPORT INFORMATION
  Report Type: Spontaneous
  Country: US (occurrence: US)
  Receive Date: 20110428
  Receipt Date: 20170224
  Transmission Date: 20170429
  Serious: Yes (Hospitalization, Other)
  Sender: FDA-Public Use
  Company Number: US-ASTRAZENECA-2011SE22865

PATIENT
  Age: 784 Month
  Sex: Female

DRUGS (12)
  1. ENZYMES NOS [Concomitant]
     Indication: SUPPLEMENTATION THERAPY
  2. VENTOLIN [Concomitant]
     Active Substance: ALBUTEROL SULFATE
  3. ALLEGRA [Concomitant]
     Active Substance: FEXOFENADINE HYDROCHLORIDE
     Indication: ANTIALLERGIC THERAPY
  4. SYMBICORT [Suspect]
     Active Substance: BUDESONIDE\FORMOTEROL FUMARATE DIHYDRATE
     Indication: ASTHMA
     Dosage: 160/4.5 TWO PUFFS TWICE A DAY
     Route: 055
  5. ALBUTEROL. [Concomitant]
     Active Substance: ALBUTEROL
  6. BENAZEPRIL HYDROCHLORIDE. [Concomitant]
     Active Substance: BENAZEPRIL HYDROCHLORIDE
     Indication: BLOOD PRESSURE ABNORMAL
     Dosage: 10 TO 12.5 TABS 1 TAB EVERY DAY
     Route: 048
  7. LUTEIN AND BILBERRY [Concomitant]
     Indication: EYE DISORDER
  8. OSTEO [Concomitant]
     Active Substance: CHONDROITIN SULFATE (BOVINE)\GLUCOSAMINE SULFATE
  9. ZINC. [Concomitant]
     Active Substance: ZINC
     Indication: EYE DISORDER
  10. FEMARA [Concomitant]
     Active Substance: LETROZOLE
  11. ZINC. [Concomitant]
     Active Substance: ZINC
     Indication: EYE DISORDER
  12. LETROZOLE. [Concomitant]
     Active Substance: LETROZOLE
     Indication: BREAST CANCER FEMALE

REACTIONS (12)
  - Breast cancer female [Unknown]
  - Blood cholesterol abnormal [Unknown]
  - Product quality issue [Unknown]
  - Intentional product misuse [Unknown]
  - Drug dose omission [Unknown]
  - Nasopharyngitis [Unknown]
  - Malaise [Unknown]
  - Incorrect product storage [Unknown]
  - Off label use [Unknown]
  - Product use issue [Unknown]
  - Infection [Unknown]
  - Hypertension [Unknown]

NARRATIVE: CASE EVENT DATE: 201008
